FAERS Safety Report 10289917 (Version 1)
Quarter: 2014Q3

REPORT INFORMATION
  Report Type: Spontaneous
  Country: US (occurrence: None)
  Receive Date: 20140707
  Receipt Date: 20140707
  Transmission Date: 20150326
  Serious: No
  Sender: FDA-Public Use
  Company Number: None

PATIENT
  Age: 67 Year
  Sex: Male
  Weight: 84.82 kg

DRUGS (1)
  1. ATENOLOL. [Suspect]
     Active Substance: ATENOLOL
     Indication: HYPERTENSION
     Dosage: 1 TO 1/2 PILL  ONCE DAILY TAKEN BY MOUTH
     Route: 048
     Dates: start: 20140422, end: 20140508

REACTIONS (5)
  - Blood pressure systolic increased [None]
  - Drug ineffective [None]
  - Feeling jittery [None]
  - Product substitution issue [None]
  - Ventricular extrasystoles [None]

NARRATIVE: CASE EVENT DATE: 20140506
